FAERS Safety Report 7971906-1 (Version None)
Quarter: 2011Q4

REPORT INFORMATION
  Report Type: 
  Country: None (occurrence: None)
  Receive Date: 20111212
  Receipt Date: 20111206
  Transmission Date: 20120403
  Serious: Yes (Other)
  Sender: FDA-Public Use
  Company Number: PHEH2011US009395

PATIENT
  Sex: Female

DRUGS (4)
  1. PROVIGIL [Concomitant]
     Dosage: 200 MG, UNK
  2. PERCOCET [Concomitant]
     Dosage: 5 / 375
  3. GILENYA [Suspect]
     Indication: MULTIPLE SCLEROSIS
     Dosage: 0.5 MG, QD
     Route: 048
     Dates: start: 20110805
  4. CYMBALTA [Concomitant]
     Dosage: 100 MG, UNK

REACTIONS (2)
  - LYMPHOCYTE COUNT DECREASED [None]
  - FULL BLOOD COUNT DECREASED [None]
